FAERS Safety Report 21998184 (Version 1)
Quarter: 2023Q1

REPORT INFORMATION
  Report Type: Spontaneous
  Country: US (occurrence: US)
  Receive Date: 20230216
  Receipt Date: 20230216
  Transmission Date: 20230417
  Serious: Yes (Death, Life-Threatening, Hospitalization)
  Sender: FDA-Public Use
  Company Number: US-drreddys-LIT/USA/23/0161403

PATIENT
  Age: 74 Year
  Sex: Female

DRUGS (2)
  1. DEXAMETHASONE [Suspect]
     Active Substance: DEXAMETHASONE
     Indication: COVID-19 pneumonia
  2. REMDESIVIR [Suspect]
     Active Substance: REMDESIVIR
     Indication: COVID-19 pneumonia

REACTIONS (7)
  - Death [Fatal]
  - Pulmonary embolism [Unknown]
  - Myocarditis [Unknown]
  - COVID-19 pneumonia [Unknown]
  - Pneumonia bacterial [Unknown]
  - Sepsis [Unknown]
  - Off label use [Unknown]
